FAERS Safety Report 9643426 (Version 1)
Quarter: 2013Q4

REPORT INFORMATION
  Report Type: Spontaneous
  Country: US (occurrence: US)
  Receive Date: 20131024
  Receipt Date: 20131024
  Transmission Date: 20140711
  Serious: Yes (Hospitalization)
  Sender: FDA-Public Use
  Company Number: US-JNJFOC-20131010427

PATIENT
  Sex: Male
  Weight: 77.11 kg

DRUGS (3)
  1. SANDOZ FENTANYL TRANSDERMAL SYSTEM [Suspect]
     Indication: PAIN
     Route: 062
     Dates: start: 2012
  2. DURAGESIC [Suspect]
     Indication: PAIN
     Route: 062
     Dates: end: 2012
  3. DURAGESIC [Suspect]
     Indication: PAIN
     Route: 062

REACTIONS (4)
  - Blood creatinine increased [Recovered/Resolved]
  - Loss of consciousness [Recovered/Resolved]
  - Blood urea increased [Recovered/Resolved]
  - Fatigue [Recovered/Resolved]
